FAERS Safety Report 7865961-7 (Version None)
Quarter: 2011Q4

REPORT INFORMATION
  Report Type: 
  Country: None (occurrence: None)
  Receive Date: 20111028
  Receipt Date: 20110328
  Transmission Date: 20120403
  Serious: No
  Sender: FDA-Public Use
  Company Number: US-GLAXOSMITHKLINE-A0920309A

PATIENT
  Age: 64 Year
  Sex: Female

DRUGS (15)
  1. ALBUTEROL [Concomitant]
  2. PRAVASTATIN [Concomitant]
  3. LOVAZA [Concomitant]
  4. VITAMIN B-12 [Concomitant]
  5. BIOTENE [Concomitant]
  6. ASCORBIC ACID [Concomitant]
  7. ADVAIR DISKUS 100/50 [Suspect]
     Indication: CHRONIC OBSTRUCTIVE PULMONARY DISEASE
     Dosage: 1PUFF TWICE PER DAY
     Route: 055
     Dates: start: 20110101, end: 20110325
  8. LISINOPRIL [Concomitant]
  9. MULTI-VITAMIN [Concomitant]
  10. MAGNESIUM [Concomitant]
  11. SPIRIVA [Concomitant]
  12. METFORMIN HCL [Concomitant]
  13. COENZYME Q10 [Concomitant]
  14. LEVOTHYROXINE SODIUM [Concomitant]
  15. CALCIUM CARBONATE [Concomitant]

REACTIONS (8)
  - DRY THROAT [None]
  - TREMOR [None]
  - COUGH [None]
  - RESPIRATION ABNORMAL [None]
  - DYSPNOEA [None]
  - BRONCHOSPASM PARADOXICAL [None]
  - DRY MOUTH [None]
  - CHEST PAIN [None]
